FAERS Safety Report 7623188-8 (Version None)
Quarter: 2011Q3

REPORT INFORMATION
  Report Type: 
  Country: None (occurrence: None)
  Receive Date: 20110720
  Receipt Date: 20110711
  Transmission Date: 20111222
  Serious: Yes (Hospitalization)
  Sender: FDA-Public Use
  Company Number: PT-KINGPHARMUSA00001-K201100805

PATIENT
  Age: 64 Year
  Sex: Male

DRUGS (1)
  1. BICILLIN L-A [Suspect]
     Indication: SYPHILIS
     Dosage: 2400000 U, SINGLE
     Route: 030

REACTIONS (8)
  - ECCHYMOSIS [None]
  - EMBOLIA CUTIS MEDICAMENTOSA [None]
  - AREFLEXIA [None]
  - URINARY INCONTINENCE [None]
  - SKIN PLAQUE [None]
  - HYPOAESTHESIA [None]
  - NERVE INJURY [None]
  - PARESIS [None]
